FAERS Safety Report 10223388 (Version 2)
Quarter: 2014Q2

REPORT INFORMATION
  Report Type: Spontaneous
  Country: US (occurrence: US)
  Receive Date: 20140609
  Receipt Date: 20140609
  Transmission Date: 20141212
  Serious: No
  Sender: FDA-Public Use
  Company Number: US-DRREDDYS-USA/USA/13/0030040

PATIENT
  Age: 51 Year
  Sex: Female

DRUGS (1)
  1. FEXOFENADINE HCL  OTC [Suspect]
     Indication: HYPERSENSITIVITY
     Dosage: 180 MG DAILY
     Route: 048
     Dates: start: 201305

REACTIONS (2)
  - Drug ineffective [Unknown]
  - Product quality issue [Unknown]
